FAERS Safety Report 9110917 (Version 1)
Quarter: 2013Q1

REPORT INFORMATION
  Report Type: Spontaneous
  Country: US (occurrence: US)
  Receive Date: 20130219
  Receipt Date: 20130219
  Transmission Date: 20140127
  Serious: No
  Sender: FDA-Public Use
  Company Number: US-BRISTOL-MYERS SQUIBB COMPANY-16372419

PATIENT
  Age: 57 Year
  Sex: Male

DRUGS (4)
  1. ORENCIA [Suspect]
     Indication: RHEUMATOID ARTHRITIS
     Dosage: 3 OR MORE INF
     Route: 042
     Dates: start: 20111013
  2. IBUPROFEN [Concomitant]
  3. FINASTERIDE [Concomitant]
  4. URSODIOL [Concomitant]

REACTIONS (1)
  - Infusion related reaction [Recovered/Resolved]
